FAERS Safety Report 16132959 (Version 3)
Quarter: 2019Q3

REPORT INFORMATION
  Report Type: Spontaneous
  Country: US (occurrence: US)
  Receive Date: 20190329
  Receipt Date: 20190918
  Transmission Date: 20191004
  Serious: No
  Sender: FDA-Public Use
  Company Number: US-ASTRAZENECA-2019SE36971

PATIENT
  Age: 72 Year
  Sex: Male

DRUGS (2)
  1. BYDUREON BCISE [Suspect]
     Active Substance: EXENATIDE
     Route: 065
  2. BYDUREON [Suspect]
     Active Substance: EXENATIDE
     Dosage: 2 MG
     Route: 065

REACTIONS (5)
  - Product dose omission [Unknown]
  - Confusional state [Unknown]
  - Device malfunction [Unknown]
  - Headache [Unknown]
  - Malaise [Unknown]
